FAERS Safety Report 7734287-4 (Version None)
Quarter: 2011Q3

REPORT INFORMATION
  Report Type: 
  Country: None (occurrence: None)
  Receive Date: 20110901
  Receipt Date: 20110817
  Transmission Date: 20111222
  Serious: Yes (Other)
  Sender: FDA-Public Use
  Company Number: US-1187755

PATIENT
  Sex: Male

DRUGS (5)
  1. TIMOLOL MALEATE [Suspect]
     Indication: CATARACT OPERATION
     Dosage: OPHTHALMIC
     Route: 047
     Dates: start: 20110711
  2. BRIMONIDINE TARTRATE [Suspect]
     Indication: CATARACT OPERATION
     Dosage: OPHTHALMIC
     Route: 047
     Dates: start: 20110711
  3. OMNIPRED [Suspect]
     Indication: CATARACT OPERATION
     Dosage: OPHTHALMIC
     Route: 047
     Dates: start: 20110711
  4. EPINEPHRINE [Concomitant]
  5. BSS PLUS [Suspect]
     Indication: INTRAOCULAR LENS IMPLANT
     Dosage: INTRAOCULAR
     Route: 031
     Dates: start: 20110711, end: 20110711

REACTIONS (1)
  - TOXIC ANTERIOR SEGMENT SYNDROME [None]
